FAERS Safety Report 10143452 (Version 1)
Quarter: 2014Q2

REPORT INFORMATION
  Report Type: Spontaneous
  Country: US (occurrence: None)
  Receive Date: 20140429
  Receipt Date: 20140429
  Transmission Date: 20141212
  Serious: Yes (Hospitalization)
  Sender: FDA-Public Use
  Company Number: None

PATIENT
  Age: 64 Year
  Sex: Male
  Weight: 94.5 kg

DRUGS (3)
  1. MEPERIDINE [Suspect]
     Indication: PAIN
     Route: 048
     Dates: start: 20140108, end: 20140112
  2. ALPRAZOLAM [Suspect]
     Indication: ANXIETY
     Route: 048
     Dates: start: 20120306, end: 20140112
  3. ALPRAZOLAM [Suspect]
     Indication: POST-TRAUMATIC STRESS DISORDER
     Route: 048
     Dates: start: 20120306, end: 20140112

REACTIONS (3)
  - Generalised tonic-clonic seizure [None]
  - Drug withdrawal syndrome [None]
  - Incorrect dose administered [None]
